FAERS Safety Report 4390262-1 (Version None)
Quarter: 2004Q2

REPORT INFORMATION
  Report Type: 
  Country: None (occurrence: None)
  Receive Date: 20040630
  Receipt Date: 20040616
  Transmission Date: 20050107
  Serious: Yes (Other)
  Sender: FDA-Public Use
  Company Number: FR-JNJFOC-20030701081

PATIENT
  Age: 77 Year
  Sex: Female
  Weight: 60 kg

DRUGS (1)
  1. GALANTAMINE (GALANTAMINE) UNSPECIFIED [Suspect]
     Indication: DEMENTIA ALZHEIMER'S TYPE
     Dosage: 4 MG, 1 IN 1 DAY, ORAL
     Route: 048
     Dates: start: 20030505, end: 20030520

REACTIONS (1)
  - URTICARIA [None]
